FAERS Safety Report 16058136 (Version 3)
Quarter: 2019Q2

REPORT INFORMATION
  Report Type: Spontaneous
  Country: KR (occurrence: KR)
  Receive Date: 20190311
  Receipt Date: 20190531
  Transmission Date: 20190711
  Serious: Yes (Death, Hospitalization, Other)
  Sender: FDA-Public Use
  Company Number: KR-009507513-1903KOR001865

PATIENT
  Sex: Female

DRUGS (34)
  1. KEYTRUDA [Suspect]
     Active Substance: PEMBROLIZUMAB
     Indication: OVARIAN CANCER
     Dosage: UNK
     Dates: start: 20190202
  2. CAELYX [Concomitant]
     Active Substance: DOXORUBICIN HYDROCHLORIDE
  3. MACPERAN [Concomitant]
     Active Substance: METOCLOPRAMIDE HYDROCHLORIDE
     Dosage: QUANTITY 1, DAYS 23
     Dates: start: 20190114, end: 20190125
  4. CRAVIT [Concomitant]
     Active Substance: LEVOFLOXACIN
     Dosage: QUANTITY 1, DAYS 36
     Dates: start: 20190116, end: 20190120
  5. AMIKACIN. [Concomitant]
     Active Substance: AMIKACIN
     Dosage: QUANTITY 1, DAYS 1
     Dates: start: 20190117
  6. KEYTRUDA [Suspect]
     Active Substance: PEMBROLIZUMAB
     Dosage: UNK
     Dates: start: 20190225
  7. LABESIN [Concomitant]
     Dosage: QUANTITY 2, DAYS 1
     Dates: start: 20190122
  8. SMOFKABIVEN PERIPHERAL [Concomitant]
     Dosage: QUANTITY 1, DAYS 15
     Dates: start: 20190131, end: 20190214
  9. DEXTROSE (+) POTASSIUM (UNSPECIFIED) (+) SODIUM (UNSPECIFIED) [Concomitant]
     Dosage: QUANTITY 2, DAYS 1
     Dates: start: 20190124
  10. ULCERLMIN [Concomitant]
     Active Substance: SUCRALFATE
     Dosage: SOLUTION, QUANTITY 2, DAY 1
     Dates: start: 20190105
  11. PETHIDINE HCL HANA [Concomitant]
     Dosage: QUANTITY 3, DAYS 4
     Dates: start: 20190115, end: 20190215
  12. AMIKACIN. [Concomitant]
     Active Substance: AMIKACIN
     Dosage: QUANTITY 1, DAYS 13
     Dates: start: 20190119, end: 20190208
  13. AMIKACIN. [Concomitant]
     Active Substance: AMIKACIN
     Dosage: QUANTITY 1.7, DAYS 1
     Dates: start: 20190401
  14. LABESIN [Concomitant]
     Dosage: FORMULATION; 20 MG/4ML, QUANTITY 1, DAYS 1
     Dates: start: 20190118
  15. SMOFKABIVEN PERIPHERAL [Concomitant]
     Dosage: QUANTITY 1, DAYS 1
     Dates: start: 20190118
  16. KEYTRUDA [Suspect]
     Active Substance: PEMBROLIZUMAB
     Dosage: QUANTITY 2, DAYS 1
     Dates: start: 20190411, end: 20190411
  17. DUPHALAC [Concomitant]
     Active Substance: LACTULOSE
     Dosage: FORMULATION; SYR 10.05G/15ML, QUANTITY 1,DAYS 2
     Dates: start: 20190111, end: 20190112
  18. LANSTON [Concomitant]
     Active Substance: LANSOPRAZOLE
     Dosage: QUANTITY 3, DAYS 1
     Dates: start: 20190112
  19. DEXTROSE. [Concomitant]
     Active Substance: DEXTROSE
     Dosage: CHOONGWAE 5%, DEXTROSE INJECTION 50 ML (BAG), QUANTITY 1, DAYS 23
     Dates: start: 20190114, end: 20190125
  20. PETHIDINE HCL HANA [Concomitant]
     Dosage: QUANTITY 3, DAYS 1
     Dates: start: 20190323
  21. MEROPEN [Concomitant]
     Active Substance: MEROPENEM
     Dosage: QUANTITY 6, DAYS 9
     Dates: start: 20190131, end: 20190208
  22. CURAN [Concomitant]
     Active Substance: RANITIDINE HYDROCHLORIDE
     Dosage: QUANTITY 4, DAYS 4
     Dates: start: 20190115, end: 20190209
  23. PETHIDINE HCL HANA [Concomitant]
     Dosage: QUANTITY 4, DAYS 1
     Dates: start: 20190116
  24. AMIKACIN. [Concomitant]
     Active Substance: AMIKACIN
     Dosage: QUANTITY 1.6, DAYS 1
     Dates: start: 20190326, end: 20190411
  25. AMIKACIN. [Concomitant]
     Active Substance: AMIKACIN
     Dosage: QUANTITY 1.8, DAYS 1
     Dates: start: 20190403
  26. AVASTIN (SIMVASTATIN) [Concomitant]
     Active Substance: SIMVASTATIN
  27. DUROGESIC [Concomitant]
     Active Substance: FENTANYL
     Dosage: FORMULATION: PATCH 50MCG/H 21 CM2, QUANTITY 1, DAYS 5
     Dates: start: 20190107, end: 20190119
  28. AMIKACIN. [Concomitant]
     Active Substance: AMIKACIN
     Dosage: QUANTITY 1.4, DAYS 5
     Dates: start: 20190321, end: 20190325
  29. SODIUM OXYBATE. [Concomitant]
     Active Substance: SODIUM OXYBATE
  30. TANTUM [Concomitant]
     Active Substance: BENZYDAMINE HYDROCHLORIDE
     Dosage: SOLUTION, QUANTITY 1, DAYS 3
     Dates: start: 20190107, end: 20190210
  31. AMIKACIN. [Concomitant]
     Active Substance: AMIKACIN
     Dosage: QUANTITY 1.2, DAYS 9
     Dates: start: 20190118, end: 20190207
  32. AMIKACIN. [Concomitant]
     Active Substance: AMIKACIN
     Dosage: QUANTITY 3.6, DAYS 1
     Dates: start: 20190405
  33. POTASSIUM (UNSPECIFIED) (+) SODIUM (UNSPECIFIED) [Concomitant]
     Dosage: QUANTITY 2, DAYS 1
     Dates: start: 20190123
  34. ALBUMIN HUMAN [Concomitant]
     Active Substance: ALBUMIN HUMAN
     Dosage: QUANTITY 1, DAYS 4
     Dates: start: 20190122, end: 20190124

REACTIONS (12)
  - Adverse event [Unknown]
  - Product use in unapproved indication [Unknown]
  - Rheumatoid arthritis [Unknown]
  - Adverse event [Unknown]
  - Transfusion [Unknown]
  - Hypophagia [Unknown]
  - Ileus [Unknown]
  - Constipation [Unknown]
  - Tuberculosis [Unknown]
  - Sjogren^s syndrome [Unknown]
  - Malignant neoplasm progression [Fatal]
  - Osteoporosis [Unknown]

NARRATIVE: CASE EVENT DATE: 2019
